FAERS Safety Report 21220825 (Version 2)
Quarter: 2022Q3

REPORT INFORMATION
  Report Type: Report from Study
  Country: US (occurrence: US)
  Receive Date: 20220817
  Receipt Date: 20220916
  Transmission Date: 20221026
  Serious: Yes (Other)
  Sender: FDA-Public Use
  Company Number: US-NOVARTISTESTPH-NVSC2022US185169

PATIENT
  Age: 74 Year
  Sex: Female

DRUGS (1)
  1. KISQALI [Suspect]
     Active Substance: RIBOCICLIB
     Indication: Breast cancer
     Dosage: 400 MG, QD
     Route: 048
     Dates: start: 202207

REACTIONS (10)
  - Metastases to liver [Unknown]
  - Metastases to lung [Unknown]
  - Metastases to thyroid [Unknown]
  - Visual impairment [Unknown]
  - Feeling abnormal [Unknown]
  - Aphasia [Unknown]
  - Illness [Unknown]
  - Blood calcium increased [Unknown]
  - Constipation [Unknown]
  - Fatigue [Unknown]

NARRATIVE: CASE EVENT DATE: 20220701
